FAERS Safety Report 14894085 (Version 2)
Quarter: 2018Q2

REPORT INFORMATION
  Report Type: Report from Study
  Country: None (occurrence: IT)
  Receive Date: 20180515
  Receipt Date: 20180628
  Transmission Date: 20180711
  Serious: Yes (Hospitalization)
  Sender: FDA-Public Use
  Company Number: IT-TEVA-2018-IT-891283

PATIENT
  Age: 15 Year
  Sex: Female
  Weight: 160 kg

DRUGS (1)
  1. METHOTREXATE 15 MG/2 ML SOLUZIONE INIETTABILE [Suspect]
     Active Substance: METHOTREXATE
     Indication: JUVENILE IDIOPATHIC ARTHRITIS
     Route: 030
     Dates: start: 20171215, end: 20171215

REACTIONS (3)
  - Nausea [Recovered/Resolved]
  - Decreased appetite [Recovered/Resolved]
  - Vomiting [Recovered/Resolved]

NARRATIVE: CASE EVENT DATE: 20171215
